FAERS Safety Report 5301517-8 (Version None)
Quarter: 2007Q2

REPORT INFORMATION
  Report Type: 
  Country: None (occurrence: None)
  Receive Date: 20070412
  Receipt Date: 20070328
  Transmission Date: 20071010
  Serious: Yes (Other)
  Sender: FDA-Public Use
  Company Number: GXKR2007NL03002

PATIENT
  Sex: Male

DRUGS (5)
  1. CYCLOSPORINE [Suspect]
     Indication: HAEMORRHAGE
     Dosage: SEE IMAGE
     Dates: start: 19940101
  2. CYCLOSPORINE [Suspect]
     Indication: HAEMORRHAGE
     Dosage: SEE IMAGE
     Dates: start: 19990101
  3. CYCLOSPORINE [Suspect]
     Indication: HAEMORRHAGE
     Dosage: SEE IMAGE
     Dates: start: 20011001
  4. NONACOG ALFA (NONACOG ALFA) [Concomitant]
  5. NOVOSEVEN [Concomitant]

REACTIONS (3)
  - NEPHROTIC SYNDROME [None]
  - NEUROTOXICITY [None]
  - RENAL IMPAIRMENT [None]
